FAERS Safety Report 6279438-6 (Version None)
Quarter: 2009Q3

REPORT INFORMATION
  Report Type: 
  Country: None (occurrence: None)
  Receive Date: 20090723
  Receipt Date: 20090710
  Transmission Date: 20100115
  Serious: Yes (Other)
  Sender: FDA-Public Use
  Company Number: US-PFIZER INC-2008027310

PATIENT
  Sex: Female
  Weight: 72.7 kg

DRUGS (4)
  1. CHANTIX [Suspect]
     Indication: SMOKING CESSATION THERAPY
     Dosage: 1 MG, 2X/DAY
     Route: 048
     Dates: start: 20080229
  2. AROMASIN [Suspect]
     Indication: BREAST CANCER
     Dosage: UNK
     Dates: start: 20080701
  3. ANASTROZOLE [Suspect]
     Dates: start: 20080101, end: 20080101
  4. PREMARIN [Concomitant]

REACTIONS (14)
  - ANAEMIA [None]
  - BLOOD PRESSURE INCREASED [None]
  - BREAST CANCER [None]
  - DIZZINESS [None]
  - FATIGUE [None]
  - FEELING ABNORMAL [None]
  - HAEMORRHAGE [None]
  - HEADACHE [None]
  - HYPERSENSITIVITY [None]
  - INJURY [None]
  - PAIN [None]
  - PARAESTHESIA [None]
  - PARAESTHESIA ORAL [None]
  - SYNCOPE [None]
